FAERS Safety Report 6497403-0 (Version None)
Quarter: 2009Q4

REPORT INFORMATION
  Report Type: 
  Country: None (occurrence: None)
  Receive Date: 20091215
  Receipt Date: 20091209
  Transmission Date: 20100525
  Serious: Yes (Other)
  Sender: FDA-Public Use
  Company Number: CA-JNJFOC-20091202039

PATIENT
  Sex: Female

DRUGS (24)
  1. REMICADE [Suspect]
     Dosage: 3RD DOSE
     Route: 042
  2. REMICADE [Suspect]
     Indication: PSORIATIC ARTHROPATHY
     Route: 042
  3. NOVO-PREDNISONE [Concomitant]
     Dosage: FOR 7 DAYS AS NEEDED.
     Route: 048
  4. NOVO-PREDNISONE [Concomitant]
     Dosage: 7 DAYS
     Route: 048
  5. OXYCODONE HCL AND ACETAMINOPHEN [Concomitant]
     Dosage: 5MG/325MG
     Route: 048
  6. ADALAT CC [Concomitant]
     Route: 048
  7. GEN-WARFARIN [Concomitant]
     Dosage: ALSO REPORTED AS 2 MG DAILY
     Route: 048
  8. NOVO-METOPROLOL [Concomitant]
     Route: 048
  9. APO-METHOTREXATE [Concomitant]
     Dosage: FRIDAY
     Route: 048
  10. NOVO RAMIPRIL [Concomitant]
     Route: 048
  11. APO-CYCLOBENZAPRINE [Concomitant]
     Route: 048
  12. RANITIDINE [Concomitant]
     Route: 048
  13. APO-PREDNISONE [Concomitant]
     Route: 048
  14. APO-FERROUS SULFATE [Concomitant]
  15. NOVO-SEMIDE [Concomitant]
  16. PMS-ZOPICLONE [Concomitant]
  17. DOCUSATE SODIUM [Concomitant]
     Route: 048
  18. LOTRIDERM [Concomitant]
     Dosage: APPLY TO AFFECTED AREAS TWICE A DAY AS NEEDED
     Route: 061
  19. VITAMIN B-12 [Concomitant]
     Route: 048
  20. ACTONEL [Concomitant]
     Dosage: 30 MINUTES BEFORE BREAKFAST WITH WATER
     Route: 048
  21. APO-FOLIC [Concomitant]
     Route: 048
  22. ARANESP [Concomitant]
     Dosage: 80 MCG/O.4 ML,
     Route: 058
  23. FENTANYL [Concomitant]
  24. UNKNOWN MEDICATION [Concomitant]

REACTIONS (11)
  - ASTHENIA [None]
  - CHILLS [None]
  - ERYTHEMA [None]
  - FATIGUE [None]
  - FEELING ABNORMAL [None]
  - HYPERTENSION [None]
  - INFUSION RELATED REACTION [None]
  - LYMPHADENOPATHY [None]
  - PARAESTHESIA [None]
  - RASH [None]
  - SWELLING FACE [None]
